FAERS Safety Report 9842286 (Version 2)
Quarter: 2014Q1

REPORT INFORMATION
  Report Type: Spontaneous
  Country: US (occurrence: US)
  Receive Date: 20140124
  Receipt Date: 20140124
  Transmission Date: 20141002
  Serious: Yes (Hospitalization)
  Sender: FDA-Public Use
  Company Number: US-B.I. PHARMACEUTICALS,INC./RIDGEFIELD-2013-BI-26526BP

PATIENT
  Age: 84 Year
  Sex: Female
  Weight: 79.38 kg

DRUGS (10)
  1. PRADAXA [Suspect]
     Indication: ATRIAL FIBRILLATION
     Dosage: 300 MG
     Dates: start: 20120113, end: 20120522
  2. NAMENDA [Concomitant]
     Dosage: 10 MG
  3. HCTZ [Concomitant]
     Dosage: 12.5 MG
  4. COZAAR [Concomitant]
     Dosage: 25 MG
  5. ISOSORBIDE [Concomitant]
     Dosage: 30 MG
  6. METOPROLOL [Concomitant]
     Dosage: 100 MG
  7. LIPITOR [Concomitant]
     Dosage: 40 MG
  8. VERAMYST [Concomitant]
  9. REGLAN [Concomitant]
     Dosage: 2 MG
  10. ASPIRIN [Concomitant]

REACTIONS (2)
  - Gastrointestinal haemorrhage [Recovered/Resolved]
  - Haemoptysis [Unknown]
